FAERS Safety Report 20086107 (Version 1)
Quarter: 2021Q4

REPORT INFORMATION
  Report Type: Spontaneous
  Country: IT (occurrence: IT)
  Receive Date: 20211118
  Receipt Date: 20211118
  Transmission Date: 20220303
  Serious: Yes (Death, Hospitalization, Other)
  Sender: FDA-Public Use
  Company Number: IT-009507513-2110ITA001684

PATIENT
  Age: 28 Year
  Sex: Female

DRUGS (3)
  1. TEMOZOLOMIDE [Suspect]
     Active Substance: TEMOZOLOMIDE
     Indication: Adrenocortical carcinoma
     Dosage: 250 MILLIGRAM DAILY FOR 5 DAYS EVERY 28
     Route: 048
     Dates: start: 202001
  2. MITOTANE [Concomitant]
     Active Substance: MITOTANE
     Indication: Adrenocortical carcinoma
     Dosage: 1000 MILLIGRAM, QD
     Dates: start: 202001
  3. CORTISONE ACETATE [Concomitant]
     Active Substance: CORTISONE ACETATE
     Dosage: 50 MILLIGRAM, QD

REACTIONS (5)
  - Interstitial lung disease [Fatal]
  - COVID-19 [Fatal]
  - Neutropenia [Unknown]
  - Lymphopenia [Unknown]
  - Product use in unapproved indication [Unknown]
